FAERS Safety Report 5250579-5 (Version None)
Quarter: 2007Q1

REPORT INFORMATION
  Report Type: 
  Country: None (occurrence: None)
  Receive Date: 20070228
  Receipt Date: 20060531
  Transmission Date: 20070707
  Serious: No
  Sender: FDA-Public Use
  Company Number: US-GLAXOSMITHKLINE-A0607468A

PATIENT
  Sex: Female

DRUGS (4)
  1. LAMICTAL [Suspect]
     Indication: EPILEPSY
     Route: 048
  2. LEVOXYL [Concomitant]
  3. METFORMIN HCL [Concomitant]
  4. DIAZEPAM [Concomitant]

REACTIONS (1)
  - SLEEP DISORDER [None]
